FAERS Safety Report 17654258 (Version 1)
Quarter: 2020Q2

REPORT INFORMATION
  Report Type: Spontaneous
  Country: DE (occurrence: DE)
  Receive Date: 20200410
  Receipt Date: 20200410
  Transmission Date: 20200713
  Serious: Yes (Other)
  Sender: FDA-Public Use
  Company Number: DE-ROCHE-2577685

PATIENT
  Sex: Female

DRUGS (1)
  1. OCREVUS [Suspect]
     Active Substance: OCRELIZUMAB
     Indication: PRODUCT USED FOR UNKNOWN INDICATION
     Dosage: NEXT DATES OF ADMINISTRATION: 26/MAR/2019, 17/SEP/2019, /MAR/2020
     Route: 065
     Dates: start: 20190312

REACTIONS (1)
  - Meningitis viral [Unknown]

NARRATIVE: CASE EVENT DATE: 202003
